FAERS Safety Report 24302389 (Version 1)
Quarter: 2024Q3

REPORT INFORMATION
  Report Type: Spontaneous
  Country: GB (occurrence: GB)
  Receive Date: 20240910
  Receipt Date: 20240910
  Transmission Date: 20241017
  Serious: Yes (Other)
  Sender: MYLAN
  Company Number: None

PATIENT
  Age: 33 Year
  Sex: Female
  Weight: 94 kg

DRUGS (3)
  1. METHYLPHENIDATE HYDROCHLORIDE [Suspect]
     Active Substance: METHYLPHENIDATE HYDROCHLORIDE
     Indication: Attention deficit hyperactivity disorder
     Dosage: 72 MILLIGRAM, AM (CONCERTA 54MG AND XENIDATE 18MG, ONE DOSE IN THE MORNING)
     Route: 065
     Dates: start: 20240802, end: 20240825
  2. CONCERTA [Concomitant]
     Active Substance: METHYLPHENIDATE HYDROCHLORIDE
     Indication: Attention deficit hyperactivity disorder
     Dosage: 54 MILLIGRAM, QD (PER DAY)
     Route: 065
     Dates: start: 20240701
  3. DESOGESTREL [Concomitant]
     Active Substance: DESOGESTREL
     Indication: Contraception
     Dosage: UNK
     Route: 065
     Dates: start: 20180101

REACTIONS (2)
  - Suicidal ideation [Recovering/Resolving]
  - Atypical migraine [Recovered/Resolved]

NARRATIVE: CASE EVENT DATE: 20240802
